FAERS Safety Report 21232482 (Version 1)
Quarter: 2022Q3

REPORT INFORMATION
  Report Type: Spontaneous
  Country: US (occurrence: None)
  Receive Date: 20220818
  Receipt Date: 20220818
  Transmission Date: 20221026
  Serious: No
  Sender: FDA-Public Use
  Company Number: None

PATIENT
  Age: 70 Year
  Sex: Female

DRUGS (2)
  1. CAPECITABINE [Suspect]
     Active Substance: CAPECITABINE
     Indication: Neoplasm malignant
  2. CAPECITABINE [Suspect]
     Active Substance: CAPECITABINE
     Indication: Neoplasm

REACTIONS (4)
  - Blood pressure increased [None]
  - Loss of consciousness [None]
  - Full blood count decreased [None]
  - Therapy interrupted [None]

NARRATIVE: CASE EVENT DATE: 20220808
